FAERS Safety Report 15693385 (Version 1)
Quarter: 2018Q4

REPORT INFORMATION
  Report Type: Spontaneous
  Country: US (occurrence: US)
  Receive Date: 20181206
  Receipt Date: 20181206
  Transmission Date: 20190205
  Serious: Yes (Other)
  Sender: FDA-Public Use
  Company Number: US-BRISTOL-MYERS SQUIBB COMPANY-BMS-2018-113422

PATIENT
  Sex: Female

DRUGS (2)
  1. COUMADINE [Suspect]
     Active Substance: WARFARIN SODIUM
     Indication: DEEP VEIN THROMBOSIS
     Dosage: 5 MG, QD
     Route: 065
  2. ELIQUIS [Suspect]
     Active Substance: APIXABAN
     Indication: DEEP VEIN THROMBOSIS
     Dosage: 5 MG, BID
     Route: 048

REACTIONS (11)
  - Cataract [Unknown]
  - Amnesia [Unknown]
  - Thrombosis [Unknown]
  - Oral mucosal blistering [Unknown]
  - Limb discomfort [Unknown]
  - Walking aid user [Unknown]
  - Fall [Unknown]
  - Head injury [Unknown]
  - Sleep disorder [Unknown]
  - Arthralgia [Unknown]
  - Abscess [Unknown]
